FAERS Safety Report 15234655 (Version 1)
Quarter: 2018Q3

REPORT INFORMATION
  Report Type: Spontaneous
  Country: US (occurrence: US)
  Receive Date: 20180803
  Receipt Date: 20180803
  Transmission Date: 20181010
  Serious: Yes (Hospitalization, Other)
  Sender: FDA-Public Use
  Company Number: US-B.I. PHARMACEUTICALS,INC./RIDGEFIELD-2018-BI-038580

PATIENT
  Sex: Female

DRUGS (4)
  1. SPIRIVA [Suspect]
     Active Substance: TIOTROPIUM BROMIDE MONOHYDRATE
     Indication: CHRONIC OBSTRUCTIVE PULMONARY DISEASE
     Dosage: ONCE DAILY;  FORM STRENGTH: 18 MCG; FORMULATION: CAPSULE(S) TAKEN WITH PRODUCT: DOSE NOT CHANGED
     Route: 055
     Dates: start: 2008
  2. ADVAIR HFA [Concomitant]
     Active Substance: FLUTICASONE PROPIONATE\SALMETEROL XINAFOATE
     Indication: CHRONIC OBSTRUCTIVE PULMONARY DISEASE
     Dosage: BID;  FORM STRENGTH AND UNIT DOSE: 250/50MCG; FORMULATION: INHALATION AEROSOL
     Route: 055
     Dates: start: 2008
  3. METFORMIN [Concomitant]
     Active Substance: METFORMIN HYDROCHLORIDE
     Indication: TYPE 2 DIABETES MELLITUS
     Dosage: BID;  FORM STRENGTH: 1000MG; FORMULATION: TABLET
     Route: 048
     Dates: start: 1988, end: 201805
  4. TOUJEO [Concomitant]
     Active Substance: INSULIN GLARGINE
     Indication: TYPE 2 DIABETES MELLITUS
     Dosage: ONCE DAILY;  FORM STRENGTH: 300 UNITS/ML; FORMULATION: SUBCUTANEOUS
     Route: 058
     Dates: start: 2017, end: 201805

REACTIONS (14)
  - Cataract [Not Recovered/Not Resolved]
  - Increased tendency to bruise [Not Recovered/Not Resolved]
  - Oesophageal carcinoma [Recovered/Resolved]
  - Arthritis [Recovered/Resolved]
  - Cardiac septal defect [Not Recovered/Not Resolved]
  - Limb injury [Recovered/Resolved]
  - Cartilage injury [Recovered/Resolved]
  - Syncope [Unknown]
  - Skin atrophy [Not Recovered/Not Resolved]
  - Leukaemia [Unknown]
  - Amnesia [Not Recovered/Not Resolved]
  - Breast cancer female [Recovered/Resolved]
  - Basal cell carcinoma [Recovered/Resolved]
  - Fall [Recovered/Resolved]

NARRATIVE: CASE EVENT DATE: 2014
